FAERS Safety Report 23253038 (Version 2)
Quarter: 2024Q1

REPORT INFORMATION
  Report Type: Report from Study
  Country: EG (occurrence: EG)
  Receive Date: 20231201
  Receipt Date: 20240116
  Transmission Date: 20240409
  Serious: Yes (Other)
  Sender: FDA-Public Use
  Company Number: EG-002147023-NVSC2022EG053950

PATIENT
  Age: 10 Year
  Sex: Male
  Weight: 24 kg

DRUGS (9)
  1. OMNITROPE [Suspect]
     Active Substance: SOMATROPIN
     Indication: Growth hormone deficiency
     Dosage: 0.8 MG, QD
     Route: 058
     Dates: start: 20220104
  2. OMNITROPE [Suspect]
     Active Substance: SOMATROPIN
     Indication: Off label use
     Dosage: 0.9 MG, QD
     Route: 058
  3. IRON [Concomitant]
     Active Substance: IRON
     Indication: Nutritional supplementation
     Dosage: 1 SPOONFUL
     Route: 048
  4. NASONEX [Concomitant]
     Active Substance: MOMETASONE FUROATE
     Indication: Rhinitis allergic
     Dosage: UNK, WHEN NEEDED
     Route: 045
  5. SERETIDE [Concomitant]
     Active Substance: FLUTICASONE PROPIONATE\SALMETEROL XINAFOATE
     Indication: Rhinitis allergic
     Dosage: 2 INHALATION MORNING AND 2 EVENING
     Route: 065
  6. STRATTERA [Concomitant]
     Active Substance: ATOMOXETINE HYDROCHLORIDE
     Dosage: 0.9 MG, QD
     Route: 058
  7. STRATTERA [Concomitant]
     Active Substance: ATOMOXETINE HYDROCHLORIDE
     Indication: Attention deficit hyperactivity disorder
     Dosage: 25 MG, QD
     Route: 048
  8. VITAMIN D NOS [Concomitant]
     Active Substance: VITAMIN D NOS
     Indication: Nutritional supplementation
     Dosage: 1 SPOONFUL
     Route: 048
  9. ZINC [Concomitant]
     Active Substance: PYRITHIONE ZINC\ZINC\ZINC CHLORIDE
     Indication: Nutritional supplementation
     Dosage: 1 SPOONFUL
     Route: 048

REACTIONS (15)
  - Growth retardation [Recovered/Resolved]
  - Injection site pain [Not Recovered/Not Resolved]
  - Puberty [Not Recovered/Not Resolved]
  - Wrong technique in product usage process [Unknown]
  - Incorrect dose administered [Unknown]
  - Product dose omission issue [Unknown]
  - Product dose omission issue [Unknown]
  - Drug administered in wrong device [Unknown]
  - Overdose [Unknown]
  - Off label use [Not Recovered/Not Resolved]
  - Product dose omission issue [Unknown]
  - Incorrect dose administered [Unknown]
  - Drug administered in wrong device [Unknown]
  - Device difficult to use [Unknown]
  - Product availability issue [Recovered/Resolved]

NARRATIVE: CASE EVENT DATE: 20220104
